FAERS Safety Report 4960483-5 (Version None)
Quarter: 2006Q2

REPORT INFORMATION
  Report Type: 
  Country: None (occurrence: None)
  Receive Date: 20060403
  Receipt Date: 20050929
  Transmission Date: 20061013
  Serious: Yes (Disabling, Other)
  Sender: FDA-Public Use
  Company Number: PHRM2005FR02590

PATIENT
  Age: 61 Year
  Sex: Female
  Weight: 61 kg

DRUGS (2)
  1. ZOMETA [Suspect]
     Indication: METASTASES TO BONE
     Dosage: 4 MG, QMO
     Route: 042
     Dates: start: 20020701
  2. AREDIA [Suspect]
     Indication: METASTASES TO BONE
     Route: 042
     Dates: start: 19990701

REACTIONS (9)
  - ACTINOMYCOSIS [None]
  - BONE DISORDER [None]
  - FISTULA [None]
  - OSTEOMYELITIS [None]
  - OSTEONECROSIS [None]
  - PAIN IN JAW [None]
  - TOOTH ABSCESS [None]
  - TOOTH EXTRACTION [None]
  - WOUND DEBRIDEMENT [None]
